FAERS Safety Report 5875956-0 (Version None)
Quarter: 2008Q3

REPORT INFORMATION
  Report Type: 
  Country: None (occurrence: None)
  Receive Date: 20080908
  Receipt Date: 20080908
  Transmission Date: 20090109
  Serious: Yes (Hospitalization, Other)
  Sender: FDA-Public Use
  Company Number: None

PATIENT
  Age: 45 Year
  Sex: Female
  Weight: 63.5036 kg

DRUGS (3)
  1. CYMBALTA [Suspect]
     Indication: POST-TRAUMATIC STRESS DISORDER
     Dosage: ONE CAPSUL QD PO, TWO WEEKS 2005 BEGINNING
     Route: 048
  2. CYMBALTA [Suspect]
     Dosage: TWO CAPSULS QD PO,  TWO WEEKS 2005 BEGINNING
     Route: 048
  3. BROMOCRYPTINE [Concomitant]

REACTIONS (3)
  - LOSS OF CONSCIOUSNESS [None]
  - MALAISE [None]
  - SPEECH DISORDER [None]
